FAERS Safety Report 10152584 (Version 2)
Quarter: 2014Q2

REPORT INFORMATION
  Report Type: Report from Study
  Country: US (occurrence: US)
  Receive Date: 20140505
  Receipt Date: 20140523
  Transmission Date: 20141212
  Serious: Yes (Hospitalization)
  Sender: FDA-Public Use
  Company Number: US-ACTELION-A-US2014-98071

PATIENT
  Age: 41 Year
  Sex: Female

DRUGS (4)
  1. TRACLEER [Suspect]
     Indication: CONNECTIVE TISSUE DISORDER
     Dosage: UNK
     Route: 048
  2. SILDENAFIL [Concomitant]
  3. TYVASO [Concomitant]
  4. COUMADIN [Concomitant]

REACTIONS (2)
  - Seasonal allergy [Unknown]
  - Bronchitis [Unknown]
